FAERS Safety Report 24972993 (Version 1)
Quarter: 2025Q1

REPORT INFORMATION
  Report Type: Spontaneous
  Country: US (occurrence: US)
  Receive Date: 20250215
  Receipt Date: 20250215
  Transmission Date: 20250409
  Serious: No
  Sender: BRACCO
  Company Number: US-BRACCO-2024US08058

PATIENT
  Sex: Female

DRUGS (1)
  1. ISOVUE 300 [Suspect]
     Active Substance: IOPAMIDOL
     Indication: Spinal myelogram
     Route: 037
     Dates: start: 20241213, end: 20241213

REACTIONS (2)
  - Incorrect route of product administration [Recovered/Resolved]
  - No adverse event [Recovered/Resolved]

NARRATIVE: CASE EVENT DATE: 20241213
